FAERS Safety Report 13533419 (Version 3)
Quarter: 2017Q2

REPORT INFORMATION
  Report Type: Report from Study
  Country: FR (occurrence: FR)
  Receive Date: 20170510
  Receipt Date: 20170626
  Transmission Date: 20170830
  Serious: Yes (Death, Hospitalization)
  Sender: FDA-Public Use
  Company Number: FR-JNJFOC-20170507579

PATIENT
  Age: 45 Year
  Sex: Male
  Weight: 92 kg

DRUGS (1)
  1. IBRUTINIB [Suspect]
     Active Substance: IBRUTINIB
     Indication: CHRONIC LYMPHOCYTIC LEUKAEMIA
     Route: 048
     Dates: start: 20160506, end: 20170426

REACTIONS (1)
  - Congestive cardiomyopathy [Fatal]

NARRATIVE: CASE EVENT DATE: 20170321
